FAERS Safety Report 5553368-7 (Version None)
Quarter: 2007Q4

REPORT INFORMATION
  Report Type: 
  Country: None (occurrence: None)
  Receive Date: 20071128
  Receipt Date: 20070809
  Transmission Date: 20080405
  Serious: Yes (Hospitalization, Other)
  Sender: FDA-Public Use
  Company Number: CIP07000252

PATIENT
  Age: 48 Year
  Sex: Female
  Weight: 81.2 kg

DRUGS (17)
  1. ACTONEL [Suspect]
     Indication: OSTEOPOROSIS
     Dosage: 35 MG, WEEKLY, ORAL
     Route: 048
     Dates: start: 20040801
  2. FOSAMAX [Suspect]
     Indication: OSTEOPOROSIS
     Dosage: 70 MG WEEKLY, ORAL
     Route: 048
     Dates: start: 20021107
  3. EFFEXOR /01233801/ (VENLAFAXINE) [Concomitant]
  4. ASPIRIN [Concomitant]
  5. COGENTIN [Concomitant]
  6. DITROPAN XL [Concomitant]
  7. LASIX [Concomitant]
  8. LEVOXYL [Concomitant]
  9. ADVAIR (SALMETEROL XINAFOATE, FLUTICASONE PROPIONATE) [Concomitant]
  10. CLONAZEPAM [Concomitant]
  11. DEPAKOTE [Concomitant]
  12. ZYPREXA [Concomitant]
  13. LIPITOR [Concomitant]
  14. MONOPRIL [Concomitant]
  15. FLUPHENAZINE [Concomitant]
  16. GLUCOPHAGE /00082701/ (METFORMIN) [Concomitant]
  17. CALCIUM CARBONATE (CALCIUM CARBONATE) [Concomitant]

REACTIONS (13)
  - ABSCESS JAW [None]
  - BONE DISORDER [None]
  - FISTULA [None]
  - INFECTION [None]
  - MALNUTRITION [None]
  - MOUTH ULCERATION [None]
  - OSTEOMYELITIS [None]
  - OSTEONECROSIS [None]
  - PAIN IN JAW [None]
  - PATHOLOGICAL FRACTURE [None]
  - POST PROCEDURAL INFECTION [None]
  - SECRETION DISCHARGE [None]
  - SWELLING FACE [None]
